FAERS Safety Report 4378704-9 (Version None)
Quarter: 2004Q2

REPORT INFORMATION
  Report Type: 
  Country: None (occurrence: None)
  Receive Date: 20040609
  Receipt Date: 20040603
  Transmission Date: 20050107
  Serious: Yes (Life-Threatening)
  Sender: FDA-Public Use
  Company Number: F01200401307

PATIENT
  Age: 68 Year
  Sex: Male

DRUGS (1)
  1. (FONDAPARINUX SODIUM)- SOLUTION- [Suspect]
     Indication: ORTHOPEDIC PROCEDURE
     Dosage: 2.5 MG
     Route: 058
     Dates: start: 20040421, end: 20040502

REACTIONS (2)
  - ANAEMIA [None]
  - MYOCARDIAL INFARCTION [None]
